FAERS Safety Report 9123898 (Version 1)
Quarter: 2013Q1

REPORT INFORMATION
  Report Type: Spontaneous
  Country: US (occurrence: US)
  Receive Date: 20130227
  Receipt Date: 20130227
  Transmission Date: 20140127
  Serious: Yes (Other)
  Sender: FDA-Public Use
  Company Number: US-SHIRE-ALL1-2013-00274

PATIENT
  Age: 9 Year
  Sex: Female
  Weight: 50.79 kg

DRUGS (1)
  1. VYVANSE [Suspect]
     Indication: ATTENTION DEFICIT/HYPERACTIVITY DISORDER
     Dosage: 40 MG, 1X/DAY:QD
     Route: 048
     Dates: start: 20120801, end: 20130114

REACTIONS (1)
  - Alopecia [Recovering/Resolving]
